FAERS Safety Report 5191405-2 (Version None)
Quarter: 2006Q4

REPORT INFORMATION
  Report Type: 
  Country: None (occurrence: None)
  Receive Date: 20061226
  Receipt Date: 20061212
  Transmission Date: 20070319
  Serious: Yes (Hospitalization)
  Sender: FDA-Public Use
  Company Number: GB-ROCHE-475313

PATIENT
  Age: 70 Year
  Sex: Female
  Weight: 104 kg

DRUGS (1)
  1. XENICAL [Suspect]
     Indication: OBESITY
     Route: 048
     Dates: start: 20061114

REACTIONS (2)
  - CHEST PAIN [None]
  - DYSPEPSIA [None]
